FAERS Safety Report 9435113 (Version 1)
Quarter: 2013Q3

REPORT INFORMATION
  Report Type: Spontaneous
  Country: NL (occurrence: None)
  Receive Date: 20130730
  Receipt Date: 20130730
  Transmission Date: 20140515
  Serious: Yes (Hospitalization)
  Sender: FDA-Public Use
  Company Number: INT_00274_2013

PATIENT
  Age: 14 Year
  Sex: Male
  Weight: 60 kg

DRUGS (1)
  1. CEFTRIAXONE [Suspect]
     Indication: LYME DISEASE
     Route: 042

REACTIONS (6)
  - Abdominal pain [None]
  - Vomiting [None]
  - Malaise [None]
  - Cholestasis [None]
  - Cholelithiasis [None]
  - Cholelithiasis [None]
